FAERS Safety Report 8606277-0 (Version None)
Quarter: 2012Q3

REPORT INFORMATION
  Report Type: 
  Country: None (occurrence: None)
  Receive Date: 20120820
  Receipt Date: 20120809
  Transmission Date: 20120928
  Serious: No
  Sender: FDA-Public Use
  Company Number: US-ASTRAZENECA-2011SE56464

PATIENT
  Age: 50 Year
  Sex: Female

DRUGS (2)
  1. CALCIUM CARBONATE [Concomitant]
  2. NEXIUM [Suspect]
     Route: 048

REACTIONS (5)
  - ABDOMINAL DISCOMFORT [None]
  - VOMITING [None]
  - GASTROOESOPHAGEAL REFLUX DISEASE [None]
  - DRUG DOSE OMISSION [None]
  - HERNIA [None]
